FAERS Safety Report 8118961-6 (Version None)
Quarter: 2012Q1

REPORT INFORMATION
  Report Type: 
  Country: None (occurrence: None)
  Receive Date: 20120207
  Receipt Date: 20120125
  Transmission Date: 20120608
  Serious: Yes (Other)
  Sender: FDA-Public Use
  Company Number: US-ROCHE-1035356

PATIENT
  Sex: Female

DRUGS (5)
  1. SINGULAIR [Concomitant]
  2. THEOPHYLLINE [Concomitant]
  3. XOLAIR [Suspect]
     Indication: PRODUCT USED FOR UNKNOWN INDICATION
     Route: 058
  4. ADVAIR DISKUS 100/50 [Concomitant]
  5. LEVOCETIRIZINE DIHYDROCHLORIDE [Concomitant]

REACTIONS (1)
  - EUPHORIC MOOD [None]
